FAERS Safety Report 5726368-1 (Version None)
Quarter: 2008Q2

REPORT INFORMATION
  Report Type: 
  Country: None (occurrence: None)
  Receive Date: 20080502
  Receipt Date: 20080428
  Transmission Date: 20081010
  Serious: Yes (Hospitalization)
  Sender: FDA-Public Use
  Company Number: JP-ASTRAZENECA-2008AP03192

PATIENT
  Sex: Female

DRUGS (4)
  1. CRESTOR [Suspect]
     Indication: HYPERLIPIDAEMIA
     Route: 048
     Dates: start: 20080416, end: 20080422
  2. BAKTAR [Suspect]
     Dosage: 960 MG/DAY ON MONDAY AND THURSDAY
     Route: 048
     Dates: start: 20080315
  3. MYSLEE [Suspect]
     Dosage: DOSE UNKNOWN
     Route: 048
     Dates: start: 20080401, end: 20080423
  4. PREDONINE [Concomitant]
     Dosage: DOSE UNKNOWN
     Route: 048
     Dates: start: 20080315

REACTIONS (1)
  - NEUTROPENIA [None]
